FAERS Safety Report 5093417-6 (Version None)
Quarter: 2006Q3

REPORT INFORMATION
  Report Type: 
  Country: None (occurrence: None)
  Receive Date: 20060829
  Receipt Date: 20060823
  Transmission Date: 20061208
  Serious: Yes (Life-Threatening)
  Sender: FDA-Public Use
  Company Number: 2006-147031-NL

PATIENT
  Age: 67 Year
  Sex: Male

DRUGS (5)
  1. DANAPAROID SODIUM (SEE ATTACHED PAGES FOR ADDITIONAL SUSPECT DRUGS) [Suspect]
     Dosage: DF
     Dates: start: 20060730, end: 20060802
  2. HEPARIN [Suspect]
     Dosage: 9000 U;/15000 UL
     Dates: start: 20060712, end: 20060722
  3. HEPARIN [Suspect]
     Dosage: 9000 U;/15000 UL
     Dates: start: 20060722, end: 20060730
  4. ACETYLSALICYLIC ACID [Concomitant]
  5. FUROSEMIDE [Concomitant]

REACTIONS (8)
  - CYANOSIS [None]
  - DISSEMINATED INTRAVASCULAR COAGULATION [None]
  - HEPARIN-INDUCED THROMBOCYTOPENIA [None]
  - INTESTINAL ISCHAEMIA [None]
  - PAIN IN EXTREMITY [None]
  - PULSE ABSENT [None]
  - SEPTIC SHOCK [None]
  - THROMBOSIS [None]
